FAERS Safety Report 6047603-9 (Version None)
Quarter: 2009Q1

REPORT INFORMATION
  Report Type: 
  Country: None (occurrence: None)
  Receive Date: 20090123
  Receipt Date: 20090115
  Transmission Date: 20090719
  Serious: Yes (Other)
  Sender: FDA-Public Use
  Company Number: FR-BAXTER-2008BH003531

PATIENT
  Age: 31 Year
  Sex: Female
  Weight: 61 kg

DRUGS (4)
  1. GAMMAGARD S/D [Suspect]
     Indication: IMMUNODEFICIENCY COMMON VARIABLE
     Route: 042
     Dates: start: 20010602
  2. SPECIAFOLDINE [Concomitant]
     Indication: PROPHYLAXIS
     Route: 048
  3. CLAVULANATE POTASSIUM [Concomitant]
     Indication: BRONCHITIS
     Route: 048
  4. SYNTOCINON [Concomitant]
     Indication: JUVENILE ARTHRITIS
     Dates: start: 20081115, end: 20081115

REACTIONS (2)
  - DRUG EXPOSURE DURING PREGNANCY [None]
  - PRE-ECLAMPSIA [None]
